FAERS Safety Report 9422834 (Version 2)
Quarter: 2013Q3

REPORT INFORMATION
  Report Type: Spontaneous
  Country: US (occurrence: None)
  Receive Date: 20130724
  Receipt Date: 20130805
  Transmission Date: 20140515
  Serious: Yes (Other)
  Sender: FDA-Public Use
  Company Number: US-JNJFOC-20130711304

PATIENT
  Sex: 0

DRUGS (2)
  1. DECITABINE [Suspect]
     Indication: NEOPLASM
     Route: 042
  2. DECITABINE [Suspect]
     Indication: NEOPLASM
     Route: 042

REACTIONS (3)
  - Fatigue [None]
  - Blood phosphorus decreased [None]
  - Off label use [None]
